FAERS Safety Report 8181406-4 (Version None)
Quarter: 2012Q1

REPORT INFORMATION
  Report Type: 
  Country: None (occurrence: None)
  Receive Date: 20120302
  Receipt Date: 20120222
  Transmission Date: 20120608
  Serious: Yes (Other)
  Sender: FDA-Public Use
  Company Number: US-ASTRAZENECA-2012SE12448

PATIENT
  Age: 52 Year
  Sex: Male

DRUGS (16)
  1. HYDROXYZINE PANTOATE [Concomitant]
  2. NITROSTAT [Concomitant]
  3. CHANTIX [Concomitant]
  4. CARBONATE [Concomitant]
  5. LIPITOR [Concomitant]
  6. OMEPRAZOLE [Suspect]
     Route: 048
  7. COREG [Concomitant]
  8. SEROQUEL XR [Suspect]
     Route: 048
  9. CELEXA [Concomitant]
  10. DOXEPIN HCL [Concomitant]
  11. PREMAZOLE [Concomitant]
  12. SOETOVOLC [Concomitant]
  13. LISINOPRIL [Concomitant]
  14. KLONOPIN [Concomitant]
  15. ABILIFY [Concomitant]
  16. METOPROLOL SUCCINATE [Concomitant]

REACTIONS (4)
  - CORONARY ARTERY OCCLUSION [None]
  - CORONARY ARTERY DISEASE [None]
  - PAIN IN EXTREMITY [None]
  - MUSCLE STRAIN [None]
